FAERS Safety Report 5246694-2 (Version None)
Quarter: 2007Q1

REPORT INFORMATION
  Report Type: 
  Country: None (occurrence: None)
  Receive Date: 20070226
  Receipt Date: 20070215
  Transmission Date: 20070707
  Serious: Yes (Hospitalization, Other)
  Sender: FDA-Public Use
  Company Number: PT-PFIZER INC-2007011237

PATIENT
  Age: 47 Year
  Sex: Female

DRUGS (2)
  1. LYRICA [Suspect]
     Indication: SCIATICA
     Route: 048
  2. IBUPROFEN [Concomitant]
     Route: 048

REACTIONS (5)
  - BALANCE DISORDER [None]
  - BRADYCARDIA [None]
  - DIZZINESS [None]
  - VERTIGO [None]
  - VOMITING [None]
